FAERS Safety Report 13895282 (Version 1)
Quarter: 2017Q3

REPORT INFORMATION
  Report Type: Spontaneous
  Country: US (occurrence: US)
  Receive Date: 20170818
  Receipt Date: 20170818
  Transmission Date: 20171127
  Serious: Yes (Life-Threatening, Other)
  Sender: FDA-Public Use
  Company Number: None

PATIENT
  Age: 75 Year
  Sex: Male
  Weight: 81 kg

DRUGS (1)
  1. METOPROL TAR 50MG [Suspect]
     Active Substance: METOPROLOL TARTRATE
     Route: 048

REACTIONS (5)
  - Mental disorder [None]
  - Depression [None]
  - Aggression [None]
  - Personality change [None]
  - Cognitive disorder [None]

NARRATIVE: CASE EVENT DATE: 20161201
